FAERS Safety Report 18157894 (Version 1)
Quarter: 2020Q3

REPORT INFORMATION
  Report Type: Spontaneous
  Country: DE (occurrence: DE)
  Receive Date: 20200817
  Receipt Date: 20200817
  Transmission Date: 20201103
  Serious: Yes (Other)
  Sender: FDA-Public Use
  Company Number: NVSC2020DE225218

PATIENT
  Sex: Female

DRUGS (1)
  1. AMOXI 1000 ? 1 A PHARMA [Suspect]
     Active Substance: AMOXICILLIN
     Indication: DENTAL OPERATION
     Dosage: 4000 MG
     Route: 065

REACTIONS (1)
  - Urinary retention [Unknown]
